FAERS Safety Report 4465151-4 (Version None)
Quarter: 2004Q3

REPORT INFORMATION
  Report Type: 
  Country: None (occurrence: None)
  Receive Date: 20040929
  Receipt Date: 20040910
  Transmission Date: 20050211
  Serious: Yes (Life-Threatening, Hospitalization, Other)
  Sender: FDA-Public Use
  Company Number: US_0409105419

PATIENT
  Age: 67 Year
  Sex: Female
  Weight: 60 kg

DRUGS (2)
  1. HUMULIN N [Suspect]
     Dates: start: 19980301, end: 20020101
  2. HUMULIN R [Suspect]
     Indication: DIABETES MELLITUS
     Dates: start: 20020101

REACTIONS (14)
  - BLOOD GLUCOSE DECREASED [None]
  - DIZZINESS [None]
  - DYSARTHRIA [None]
  - GALLBLADDER OPERATION [None]
  - HEPATIC CIRRHOSIS [None]
  - HEPATITIS C [None]
  - KIDNEY ENLARGEMENT [None]
  - LOSS OF CONSCIOUSNESS [None]
  - PAIN [None]
  - PANCREATIC DISORDER [None]
  - POST PROCEDURAL COMPLICATION [None]
  - POSTOPERATIVE INFECTION [None]
  - SEPSIS [None]
  - TREMOR [None]
